FAERS Safety Report 6929776-6 (Version None)
Quarter: 2010Q3

REPORT INFORMATION
  Report Type: 
  Country: None (occurrence: None)
  Receive Date: 20100817
  Receipt Date: 20100817
  Transmission Date: 20110219
  Serious: Yes (Other)
  Sender: FDA-Public Use
  Company Number: None

PATIENT
  Sex: Female
  Weight: 59.8748 kg

DRUGS (2)
  1. REMICADE [Suspect]
     Indication: ANKYLOSING SPONDYLITIS
     Dosage: 10MG/KG EVERY 4 WEEKS 3HR INFUSION
     Dates: start: 20051101
  2. REMICADE [Suspect]
     Indication: COLITIS ULCERATIVE
     Dosage: 10MG/KG EVERY 4 WEEKS 3HR INFUSION
     Dates: start: 20051101

REACTIONS (10)
  - ALOPECIA [None]
  - COUGH [None]
  - FATIGUE [None]
  - FLUSHING [None]
  - HYPERHIDROSIS [None]
  - INCREASED UPPER AIRWAY SECRETION [None]
  - MYALGIA [None]
  - ONYCHOMYCOSIS [None]
  - PSORIASIS [None]
  - SYSTEMIC LUPUS ERYTHEMATOSUS [None]
